FAERS Safety Report 13507541 (Version 1)
Quarter: 2017Q2

REPORT INFORMATION
  Report Type: Spontaneous
  Country: US (occurrence: US)
  Receive Date: 20170502
  Receipt Date: 20170502
  Transmission Date: 20170830
  Serious: No
  Sender: FDA-Public Use
  Company Number: None

PATIENT
  Age: 48 Year
  Sex: Male

DRUGS (1)
  1. BOSULIF [Suspect]
     Active Substance: BOSUTINIB MONOHYDRATE
     Indication: CHRONIC MYELOID LEUKAEMIA
     Route: 048
     Dates: start: 201404

REACTIONS (7)
  - Anger [None]
  - Nausea [None]
  - Gastric disorder [None]
  - Arthralgia [None]
  - Depression [None]
  - Bone pain [None]
  - Vomiting [None]

NARRATIVE: CASE EVENT DATE: 20161101
